FAERS Safety Report 4930998-4 (Version None)
Quarter: 2006Q1

REPORT INFORMATION
  Report Type: 
  Country: None (occurrence: None)
  Receive Date: 20060227
  Receipt Date: 20060214
  Transmission Date: 20060701
  Serious: Yes (Life-Threatening, Hospitalization, Other)
  Sender: FDA-Public Use
  Company Number: 2006014252

PATIENT
  Age: 66 Year
  Sex: Male
  Weight: 58.5 kg

DRUGS (7)
  1. HALCION [Suspect]
     Indication: INSOMNIA
     Dosage: 1 TAB (1 IN 1 D), ORAL
     Route: 048
     Dates: end: 20060109
  2. CONIEL (BENIDIPINE HYDROCHLORIDE) [Concomitant]
  3. ASPIRIN [Concomitant]
  4. YODEL (SENNA) [Concomitant]
  5. URSO 250 [Concomitant]
  6. ALL OTHER NON-THERAPEUTIC PRODUCTS (ALL OTHER NON-THERAPEUTIC PRODUCTS [Concomitant]
  7. VITANEURIN (THIAMINE HYDROCHLORIDE) [Concomitant]

REACTIONS (12)
  - APHASIA [None]
  - BLOOD CREATINE PHOSPHOKINASE INCREASED [None]
  - CEREBRAL ATROPHY [None]
  - CEREBRAL INFARCTION [None]
  - CONTUSION [None]
  - DISORIENTATION [None]
  - DYSSTASIA [None]
  - FALL [None]
  - INSOMNIA [None]
  - MUSCULAR WEAKNESS [None]
  - PRURITUS GENERALISED [None]
  - RESTLESSNESS [None]
